FAERS Safety Report 20675735 (Version 5)
Quarter: 2024Q1

REPORT INFORMATION
  Report Type: Spontaneous
  Country: US (occurrence: US)
  Receive Date: 20220405
  Receipt Date: 20240226
  Transmission Date: 20240409
  Serious: Yes (Other)
  Sender: FDA-Public Use
  Company Number: US-PFIZER INC-202100935046

PATIENT
  Age: 57 Year
  Sex: Female

DRUGS (5)
  1. IBRANCE [Suspect]
     Active Substance: PALBOCICLIB
     Dosage: 125 MG
     Dates: start: 20210706
  2. IBRANCE [Suspect]
     Active Substance: PALBOCICLIB
     Dosage: 125 MG
     Dates: start: 20210712
  3. IBRANCE [Suspect]
     Active Substance: PALBOCICLIB
     Dosage: 125 MG
     Dates: start: 20210801
  4. IBRANCE [Suspect]
     Active Substance: PALBOCICLIB
     Dosage: 125 MG, 1X/DAY
  5. IBRANCE [Suspect]
     Active Substance: PALBOCICLIB
     Dosage: 100 MG

REACTIONS (8)
  - Neutropenia [Unknown]
  - Pneumonitis [Unknown]
  - Hyperhidrosis [Unknown]
  - Fatigue [Unknown]
  - Alopecia [Unknown]
  - Infection [Unknown]
  - Urinary tract infection [Unknown]
  - COVID-19 [Unknown]
